FAERS Safety Report 21077897 (Version 1)
Quarter: 2022Q3

REPORT INFORMATION
  Report Type: Spontaneous
  Country: CN (occurrence: CN)
  Receive Date: 20220713
  Receipt Date: 20220713
  Transmission Date: 20221027
  Serious: Yes (Other)
  Sender: FDA-Public Use
  Company Number: None

PATIENT
  Age: 45 Year
  Sex: Female
  Weight: 69 kg

DRUGS (9)
  1. CYCLOPHOSPHAMIDE [Suspect]
     Active Substance: CYCLOPHOSPHAMIDE
     Indication: Breast cancer female
     Dosage: UNK, QD, FIRST CHEMOTHERAPY,(ENDOXAN CTX) + NS
     Route: 042
  2. CYCLOPHOSPHAMIDE [Suspect]
     Active Substance: CYCLOPHOSPHAMIDE
     Dosage: 950.000000MG ONCE DAILY, POWDER INJECTION,SECOND CHEMOTHERAPY, (ENDOXAN CTX) 950 MG + NS 50ML
     Route: 042
     Dates: start: 20220411, end: 20220411
  3. SODIUM CHLORIDE [Suspect]
     Active Substance: SODIUM CHLORIDE
     Indication: Medication dilution
     Dosage: UNK UNK, QD, FIRST CHEMOTHERAPY,ENDOXAN CTX) + NS
     Route: 042
  4. SODIUM CHLORIDE [Suspect]
     Active Substance: SODIUM CHLORIDE
     Dosage: 50 ML,QD,SECOND CHEMOTHERAPY, (ENDOXAN CTX) 950 MG + NS 50ML
     Route: 042
     Dates: start: 20220411, end: 20220411
  5. SODIUM CHLORIDE [Suspect]
     Active Substance: SODIUM CHLORIDE
     Dosage: UNK, QD, FIRST CHEMOTHERAPY,EPIRUBICIN HYDROCHLORIDE (PHARMORUBICIN) + NS
     Route: 041
  6. SODIUM CHLORIDE [Suspect]
     Active Substance: SODIUM CHLORIDE
     Dosage: 100 ML, QD,SECOND CHEMOTHERAPY,EPIRUBICIN HYDROCHLORIDE (PHARMORUBICIN) 140 MG + NS 100ML
     Route: 041
     Dates: start: 20220411, end: 20220411
  7. EPIRUBICIN [Suspect]
     Active Substance: EPIRUBICIN
     Indication: Breast cancer female
     Dosage: UNK, QD, FIRST CHEMOTHERAPY,EPIRUBICIN HYDROCHLORIDE (PHARMORUBICIN) + NS
     Route: 041
  8. EPIRUBICIN [Suspect]
     Active Substance: EPIRUBICIN
     Dosage: 14.000000MG ONCE DAILY, SECOND CHEMOTHERAPY, (ENDOXAN CTX) 950 MG + NS 50ML
     Route: 041
     Dates: start: 20220411, end: 20220411
  9. Jin you li [Concomitant]
     Indication: Product used for unknown indication
     Dosage: 3 MG
     Route: 058
     Dates: start: 20220412

REACTIONS (2)
  - White blood cell count decreased [Recovered/Resolved]
  - Agranulocytosis [Recovered/Resolved]

NARRATIVE: CASE EVENT DATE: 20220419
